FAERS Safety Report 6645617-9 (Version None)
Quarter: 2010Q1

REPORT INFORMATION
  Report Type: 
  Country: None (occurrence: None)
  Receive Date: 20100319
  Receipt Date: 20100319
  Transmission Date: 20100710
  Serious: Yes (Hospitalization)
  Sender: FDA-Public Use
  Company Number: None

PATIENT
  Sex: Male
  Weight: 72.7 kg

DRUGS (2)
  1. CISPLATIN [Suspect]
     Dosage: 140 MG
     Dates: end: 20100305
  2. TAXOTERE [Suspect]
     Dosage: 102 MG
     Dates: end: 20100305

REACTIONS (3)
  - DEHYDRATION [None]
  - HYPOTENSION [None]
  - VOMITING [None]
